FAERS Safety Report 16065433 (Version 1)
Quarter: 2019Q1

REPORT INFORMATION
  Report Type: Report from Study
  Country: ZA (occurrence: ZA)
  Receive Date: 20190313
  Receipt Date: 20190313
  Transmission Date: 20190418
  Serious: Yes (Other)
  Sender: FDA-Public Use
  Company Number: ZA-SA-2018SA286646

PATIENT
  Age: 49 Year
  Sex: Male

DRUGS (4)
  1. OPTISULIN (INSULIN GLARGINE) [Suspect]
     Active Substance: INSULIN GLARGINE
     Indication: TYPE 2 DIABETES MELLITUS
     Dosage: 28 U, HS
     Route: 058
     Dates: start: 20180720
  2. GLICLAZIDE [Concomitant]
     Active Substance: GLICLAZIDE
     Dosage: 90 MG, QD
     Dates: start: 20070720
  3. COXFLAM [Concomitant]
     Active Substance: MELOXICAM
     Dosage: 15 MG, QW
     Dates: start: 20120720
  4. METORED [Concomitant]
     Active Substance: METFORMIN HYDROCHLORIDE
     Dosage: 1000 MG, QD
     Dates: start: 20070720

REACTIONS (5)
  - Glycosylated haemoglobin increased [Unknown]
  - Dizziness [Unknown]
  - Cholecystitis infective [Not Recovered/Not Resolved]
  - Malaise [Unknown]
  - Nausea [Unknown]

NARRATIVE: CASE EVENT DATE: 20190222
